FAERS Safety Report 21437378 (Version 1)
Quarter: 2022Q4

REPORT INFORMATION
  Report Type: Spontaneous
  Country: IT (occurrence: IT)
  Receive Date: 20221011
  Receipt Date: 20221011
  Transmission Date: 20230112
  Serious: Yes (Death, Other)
  Sender: FDA-Public Use
  Company Number: IT-AMGEN-ITASP2022171367

PATIENT

DRUGS (1)
  1. BEVACIZUMAB [Suspect]
     Active Substance: BEVACIZUMAB
     Indication: Glioma
     Dosage: UNK
     Route: 065

REACTIONS (8)
  - Disease progression [Fatal]
  - Embolism [Fatal]
  - Sepsis [Fatal]
  - Road traffic accident [Fatal]
  - Neutropenia [Unknown]
  - Thrombocytopenia [Unknown]
  - Therapy partial responder [Unknown]
  - Paraesthesia [Unknown]
